FAERS Safety Report 8474627-4 (Version None)
Quarter: 2012Q2

REPORT INFORMATION
  Report Type: 
  Country: None (occurrence: None)
  Receive Date: 20120628
  Receipt Date: 20120615
  Transmission Date: 20120825
  Serious: Yes (Hospitalization)
  Sender: FDA-Public Use
  Company Number: GB-CELGENEUS-167-21880-12053527

PATIENT
  Sex: Male
  Weight: 97.6 kg

DRUGS (19)
  1. ASPIRIN [Concomitant]
     Indication: THROMBOSIS PROPHYLAXIS
     Dosage: 75 MILLIGRAM
     Route: 048
     Dates: start: 20120430
  2. LANSOPRAZOLE [Concomitant]
     Indication: PROPHYLAXIS
     Dosage: 30 MILLIGRAM
     Route: 048
     Dates: start: 20120430
  3. NOVORAPID [Concomitant]
     Route: 058
  4. PERINDOPRIL ERBUMINE [Concomitant]
     Indication: HYPERTENSION
     Dosage: 2 MILLIGRAM
     Route: 048
  5. SIMVASTATIN [Concomitant]
     Indication: HYPERCHOLESTEROLAEMIA
     Dosage: 80 MILLIGRAM
     Route: 048
  6. FLUCLOXACILLIN [Concomitant]
     Indication: CELLULITIS
     Dosage: 2000 MICROGRAM
     Route: 048
     Dates: start: 20120514
  7. ALLOPURINOL [Concomitant]
     Indication: PROPHYLAXIS
     Dosage: 300 MILLIGRAM
     Route: 048
     Dates: start: 20120430
  8. COTRIM [Concomitant]
     Dosage: 960 MILLIGRAM
     Route: 048
     Dates: start: 20120430
  9. ALENDRONATE SODIUM [Concomitant]
     Indication: OSTEOPOROSIS PROPHYLAXIS
     Route: 048
     Dates: start: 20120430
  10. ALEMTUZUMAB [Suspect]
     Route: 065
  11. ATENOLOL [Concomitant]
     Indication: HYPERTENSION
     Dosage: 25 MILLIGRAM
     Route: 048
  12. ITRACONAZOLE [Concomitant]
     Indication: ANTIFUNGAL PROPHYLAXIS
     Dosage: 400 MILLIGRAM
     Route: 048
     Dates: start: 20120430
  13. LANTUS [Concomitant]
     Dosage: 26 UNITS IN AM AND 28 UNITS IN PM
     Route: 058
  14. LEVOTHYROXINE [Concomitant]
     Indication: HYPOTHYROIDISM
     Dosage: 100 MICROGRAM
     Route: 048
  15. IMMUNE GLOBULIN NOS [Concomitant]
     Route: 065
  16. ACYCLOVIR [Concomitant]
     Indication: ANTIVIRAL PROPHYLAXIS
     Dosage: 800 MILLIGRAM
     Route: 048
     Dates: start: 20120430
  17. REVLIMID [Suspect]
     Dosage: 10 MILLIGRAM
     Route: 048
     Dates: start: 20120430, end: 20120524
  18. DEXAMETHASONE [Suspect]
     Dosage: 40 MILLIGRAM
     Route: 048
     Dates: start: 20120416
  19. AMITRIPTYLINE HCL [Concomitant]
     Indication: PAIN MANAGEMENT
     Dosage: 10 MILLIGRAM
     Route: 048

REACTIONS (6)
  - MUSCULAR WEAKNESS [None]
  - CIRCULATORY COLLAPSE [None]
  - DYSPNOEA [None]
  - LOCALISED OEDEMA [None]
  - HYPOTENSION [None]
  - CELLULITIS [None]
